FAERS Safety Report 7812376-3 (Version None)
Quarter: 2011Q4

REPORT INFORMATION
  Report Type: 
  Country: None (occurrence: None)
  Receive Date: 20111013
  Receipt Date: 20111005
  Transmission Date: 20120403
  Serious: Yes (Other)
  Sender: FDA-Public Use
  Company Number: DK-GLAXOSMITHKLINE-B0754939A

PATIENT
  Sex: Female

DRUGS (2)
  1. TROBALT [Suspect]
     Indication: EPILEPSY
     Route: 065
  2. ANTI-EPILEPTIC DRUGS (UNSPECIFIED) [Concomitant]
     Indication: EPILEPSY
     Route: 065

REACTIONS (4)
  - CIRCULATORY COLLAPSE [None]
  - MUSCLE SPASMS [None]
  - PARAESTHESIA [None]
  - DIZZINESS [None]
